FAERS Safety Report 7761294-8 (Version None)
Quarter: 2011Q3

REPORT INFORMATION
  Report Type: 
  Country: None (occurrence: None)
  Receive Date: 20110920
  Receipt Date: 20110908
  Transmission Date: 20111222
  Serious: No
  Sender: FDA-Public Use
  Company Number: US-JNJFOC-20110905093

PATIENT
  Sex: Male
  Weight: 95.26 kg

DRUGS (24)
  1. DURAGESIC-100 [Suspect]
     Route: 062
     Dates: start: 20080101, end: 20100101
  2. ARICEPT [Concomitant]
     Route: 048
     Dates: start: 20070101, end: 20110101
  3. PROZAC [Concomitant]
     Route: 048
     Dates: start: 20070101
  4. NAMENDA [Concomitant]
     Route: 048
     Dates: start: 20070101
  5. FIORICET [Concomitant]
     Indication: HEADACHE
     Dosage: TWICE DAILY AS NEEDED
     Route: 048
     Dates: start: 20070101
  6. ALL OTHER THERAPEUTIC PRODUCTS [Concomitant]
     Dosage: FOUR TIMES DAILY AS NEEDED
     Route: 048
     Dates: start: 20070101
  7. STRATTERA [Concomitant]
     Route: 048
     Dates: start: 20070101
  8. CONCERTA [Concomitant]
     Route: 048
     Dates: start: 20070101
  9. PREDNISONE [Concomitant]
     Route: 048
     Dates: start: 20060101
  10. DURAGESIC-100 [Suspect]
     Indication: PAIN
     Dosage: 2 X 100 UG/HR = 200 UG/HR PATCHES
     Route: 062
     Dates: start: 20070101, end: 20080101
  11. TRILEPTAL [Concomitant]
     Dosage: 1 IN AM
     Route: 048
     Dates: start: 20070101
  12. PROTONIX [Concomitant]
     Indication: GASTROOESOPHAGEAL REFLUX DISEASE
     Route: 048
     Dates: start: 20010101
  13. SEROQUEL [Concomitant]
     Route: 048
     Dates: start: 20070101
  14. DURAGESIC-100 [Suspect]
     Route: 062
     Dates: start: 20100101, end: 20100101
  15. PENICILLIN [Concomitant]
     Indication: SPLEEN DISORDER
     Route: 065
     Dates: start: 19910101
  16. COUMADIN [Concomitant]
     Route: 048
     Dates: start: 20010101
  17. MAXALT [Concomitant]
     Dosage: TWICE DAILY AS NEEDED
     Route: 048
     Dates: start: 20070101
  18. ANDROGEL [Concomitant]
     Indication: HORMONE REPLACEMENT THERAPY
     Route: 061
     Dates: start: 20010101
  19. DURAGESIC-100 [Suspect]
     Route: 062
     Dates: start: 20100101
  20. TRILEPTAL [Concomitant]
     Dosage: 1 IN PM
     Route: 048
     Dates: start: 20070101
  21. VERAPAMIL [Concomitant]
     Route: 048
     Dates: start: 20070101
  22. SONATA [Concomitant]
     Indication: SLEEP DISORDER THERAPY
     Route: 048
     Dates: start: 20070101
  23. DILAUDID [Concomitant]
     Dosage: FOUR TIMES DAILY AS NEEDED
     Route: 048
     Dates: start: 20070101
  24. ATIVAN [Concomitant]
     Dosage: FOUR TIMES DAILY AS NEEDED
     Route: 048
     Dates: start: 20070101

REACTIONS (4)
  - WRONG TECHNIQUE IN DRUG USAGE PROCESS [None]
  - GASTROOESOPHAGEAL REFLUX DISEASE [None]
  - PRODUCT QUALITY ISSUE [None]
  - HYPERHIDROSIS [None]
